FAERS Safety Report 8984905 (Version 2)
Quarter: 2013Q4

REPORT INFORMATION
  Report Type: Spontaneous
  Country: US (occurrence: US)
  Receive Date: 20121225
  Receipt Date: 20131223
  Transmission Date: 20140711
  Serious: No
  Sender: FDA-Public Use
  Company Number: US-009507513-1212USA009579

PATIENT
  Sex: Male

DRUGS (5)
  1. PEG-INTRON [Suspect]
     Indication: HEPATITIS C
     Dosage: UNK UNK, Q3W
     Dates: start: 19980102, end: 20030102
  2. PEG-INTRON [Suspect]
     Dosage: UNK
     Dates: start: 20030307
  3. RIBAVIRIN [Suspect]
     Indication: HEPATITIS C
     Dosage: UNK
     Dates: start: 19980102, end: 20030102
  4. RIBAVIRIN [Suspect]
     Dosage: UNK
     Dates: start: 20030307, end: 20080307
  5. PEGINTRON [Suspect]
     Indication: HEPATITIS C
     Dosage: UNK
     Dates: start: 20030307

REACTIONS (3)
  - Drug withdrawal syndrome [Unknown]
  - Fatigue [Unknown]
  - Drug ineffective [Unknown]
